FAERS Safety Report 12435899 (Version 1)
Quarter: 2016Q2

REPORT INFORMATION
  Report Type: Spontaneous
  Country: US (occurrence: US)
  Receive Date: 20160604
  Receipt Date: 20160604
  Transmission Date: 20160815
  Serious: Yes (Other)
  Sender: FDA-Public Use
  Company Number: US-AUROBINDO-AUR-APL-2016-06955

PATIENT
  Age: 23 Year
  Sex: Male

DRUGS (1)
  1. FLUCONAZOLE. [Suspect]
     Active Substance: FLUCONAZOLE
     Indication: TINEA VERSICOLOUR
     Dosage: 300 MG, UNK
     Route: 065

REACTIONS (4)
  - Fixed drug eruption [Recovered/Resolved]
  - Skin plaque [Recovered/Resolved]
  - Oedema [Recovered/Resolved]
  - Skin hyperpigmentation [Recovered/Resolved]
